FAERS Safety Report 4334345-0 (Version None)
Quarter: 2004Q2

REPORT INFORMATION
  Report Type: 
  Country: None (occurrence: None)
  Receive Date: 20040405
  Receipt Date: 20040325
  Transmission Date: 20050107
  Serious: Yes (Hospitalization)
  Sender: FDA-Public Use
  Company Number: THQ2003A00492

PATIENT
  Age: 71 Year
  Sex: Female

DRUGS (13)
  1. PIOGLITAZONE HCL [Suspect]
     Indication: DIABETES MELLITUS NON-INSULIN-DEPENDENT
     Dosage: 30 MG (30 MG, 1 IN 1 D) PER ORAL
     Route: 048
     Dates: start: 20030127
  2. ASPIRIN [Concomitant]
  3. THYROXIN (LEVOTHYROXINE SODIUM) [Concomitant]
  4. TEMAZEPAM [Concomitant]
  5. HYDROXOCOBALAMIN (HYDROXOCOBALAMIN) [Concomitant]
  6. ACRIVASTINE (ACRIVASTINE) [Concomitant]
  7. LANSOPRAZOLE [Concomitant]
  8. FERROUS SULFATE TAB [Concomitant]
  9. CALCIUM (CALCIUM) [Concomitant]
  10. NPH INSULIN [Concomitant]
  11. INSULIN LISPRO (INSULIN LISPRO) [Concomitant]
  12. NOVOMIX (INSULIN ASPART) [Concomitant]
  13. QUININE HYDROCHLORIDE (QUININE HYDROCHLORIDE) [Concomitant]

REACTIONS (3)
  - DIVERTICULUM INTESTINAL [None]
  - GASTROENTERITIS [None]
  - HYPOGLYCAEMIA [None]
